FAERS Safety Report 8395588-2 (Version None)
Quarter: 2012Q2

REPORT INFORMATION
  Report Type: 
  Country: None (occurrence: None)
  Receive Date: 20120530
  Receipt Date: 20111007
  Transmission Date: 20120825
  Serious: No
  Sender: FDA-Public Use
  Company Number: US-GLAXOSMITHKLINE-A0948714A

PATIENT
  Age: 45 Year
  Sex: Female

DRUGS (1)
  1. VENTOLIN HFA [Suspect]

REACTIONS (1)
  - DRUG ADMINISTRATION ERROR [None]
